FAERS Safety Report 5133111-6 (Version None)
Quarter: 2006Q4

REPORT INFORMATION
  Report Type: 
  Country: None (occurrence: None)
  Receive Date: 20061017
  Receipt Date: 20061009
  Transmission Date: 20070319
  Serious: Yes (Hospitalization)
  Sender: FDA-Public Use
  Company Number: 2006-02520

PATIENT
  Age: 59 Year
  Sex: Male
  Weight: 72 kg

DRUGS (3)
  1. VELCADE [Suspect]
     Indication: MULTIPLE MYELOMA
     Dosage: 2.40 MG/M2
     Dates: start: 20060808, end: 20060814
  2. DEXAMETHASONE TAB [Suspect]
     Indication: MULTIPLE MYELOMA
     Dosage: 40.00 MG
     Dates: start: 20060801, end: 20060801
  3. TRAMADOL HCL [Concomitant]

REACTIONS (12)
  - APLASIA [None]
  - BACTERIA STOOL IDENTIFIED [None]
  - BLASTOCYSTIS INFECTION [None]
  - CLOSTRIDIUM DIFFICILE TOXIN TEST POSITIVE [None]
  - COLITIS [None]
  - DIARRHOEA [None]
  - FUNGUS STOOL IDENTIFIED [None]
  - HYPOCALCAEMIA [None]
  - INFLAMMATION [None]
  - NEUTROPENIA [None]
  - THROMBOCYTOPENIA [None]
  - WEIGHT DECREASED [None]
